FAERS Safety Report 6864169-1 (Version None)
Quarter: 2010Q3

REPORT INFORMATION
  Report Type: 
  Country: None (occurrence: None)
  Receive Date: 20100721
  Receipt Date: 20080314
  Transmission Date: 20110219
  Serious: No
  Sender: FDA-Public Use
  Company Number: US-PFIZER INC-2008025492

PATIENT
  Sex: Female

DRUGS (3)
  1. CHANTIX [Suspect]
     Indication: SMOKING CESSATION THERAPY
     Dates: start: 20080115
  2. OMACOR [Concomitant]
  3. VITAMINS [Concomitant]

REACTIONS (4)
  - FATIGUE [None]
  - FLATULENCE [None]
  - INCREASED APPETITE [None]
  - WEIGHT INCREASED [None]
